FAERS Safety Report 24886868 (Version 1)
Quarter: 2025Q1

REPORT INFORMATION
  Report Type: Spontaneous
  Country: US (occurrence: US)
  Receive Date: 20250126
  Receipt Date: 20250126
  Transmission Date: 20250408
  Serious: No
  Sender: ROCHE
  Company Number: US-ROCHE-10000190552

PATIENT
  Sex: Male

DRUGS (23)
  1. RITUXAN [Suspect]
     Active Substance: RITUXIMAB
     Indication: Burkitt^s lymphoma
     Route: 065
  2. RITUXAN [Suspect]
     Active Substance: RITUXIMAB
     Indication: Diffuse large B-cell lymphoma
  3. RITUXAN [Suspect]
     Active Substance: RITUXIMAB
     Indication: Chronic lymphocytic leukaemia refractory
  4. RITUXAN [Suspect]
     Active Substance: RITUXIMAB
     Indication: Microscopic polyangiitis
  5. RITUXAN [Suspect]
     Active Substance: RITUXIMAB
     Indication: Pemphigus
  6. RITUXAN [Suspect]
     Active Substance: RITUXIMAB
     Indication: Granulomatosis with polyangiitis
  7. RITUXAN [Suspect]
     Active Substance: RITUXIMAB
     Indication: Joint injury
  8. RITUXAN [Suspect]
     Active Substance: RITUXIMAB
     Indication: Rheumatoid arthritis
  9. RITUXAN [Suspect]
     Active Substance: RITUXIMAB
     Indication: Granulomatosis with polyangiitis
  10. RITUXAN [Suspect]
     Active Substance: RITUXIMAB
     Indication: B-cell lymphoma stage III
  11. RITUXAN [Suspect]
     Active Substance: RITUXIMAB
     Indication: B-cell lymphoma stage IV
  12. RITUXAN [Suspect]
     Active Substance: RITUXIMAB
     Indication: Follicular lymphoma
  13. RITUXAN [Suspect]
     Active Substance: RITUXIMAB
     Indication: Follicular lymphoma
  14. RITUXAN [Suspect]
     Active Substance: RITUXIMAB
     Indication: Neurosarcoidosis
  15. RITUXAN [Suspect]
     Active Substance: RITUXIMAB
     Indication: Central nervous system vasculitis
  16. ACTEMRA [Suspect]
     Active Substance: TOCILIZUMAB
     Indication: Burkitt^s lymphoma
     Route: 040
  17. ACTEMRA [Suspect]
     Active Substance: TOCILIZUMAB
     Indication: Diffuse large B-cell lymphoma
  18. ACTEMRA [Suspect]
     Active Substance: TOCILIZUMAB
     Indication: Chronic lymphocytic leukaemia refractory
  19. ACTEMRA [Suspect]
     Active Substance: TOCILIZUMAB
     Indication: Microscopic polyangiitis
  20. ACTEMRA [Suspect]
     Active Substance: TOCILIZUMAB
     Indication: Pemphigus
  21. ACTEMRA [Suspect]
     Active Substance: TOCILIZUMAB
     Indication: Granulomatosis with polyangiitis
  22. ACTEMRA [Suspect]
     Active Substance: TOCILIZUMAB
     Indication: Neurosarcoidosis
  23. ACTEMRA [Suspect]
     Active Substance: TOCILIZUMAB
     Indication: Central nervous system vasculitis

REACTIONS (2)
  - Off label use [Unknown]
  - No adverse event [Unknown]
